FAERS Safety Report 6261478-4 (Version None)
Quarter: 2009Q3

REPORT INFORMATION
  Report Type: 
  Country: None (occurrence: None)
  Receive Date: 20090702
  Receipt Date: 20090409
  Transmission Date: 20100115
  Serious: No
  Sender: FDA-Public Use
  Company Number: 1000005743

PATIENT
  Age: 51 Year
  Sex: Female
  Weight: 69.8539 kg

DRUGS (2)
  1. BYSTOLIC [Suspect]
     Indication: HYPERTENSION
     Dosage: 5 MG (5 MG,1 IN 1 D), ORAL
     Route: 048
     Dates: start: 20090109
  2. ATIVAN [Concomitant]

REACTIONS (8)
  - DECREASED APPETITE [None]
  - DIARRHOEA [None]
  - DYSPEPSIA [None]
  - FATIGUE [None]
  - INSOMNIA [None]
  - NAUSEA [None]
  - PRURITUS [None]
  - WEIGHT DECREASED [None]
